FAERS Safety Report 14170525 (Version 1)
Quarter: 2017Q4

REPORT INFORMATION
  Report Type: Spontaneous
  Country: DE (occurrence: DE)
  Receive Date: 20171108
  Receipt Date: 20171108
  Transmission Date: 20180321
  Serious: Yes (Other)
  Sender: FDA-Public Use
  Company Number: DE-ALLERGAN-1763896US

PATIENT
  Age: 76 Year
  Sex: Male

DRUGS (4)
  1. FOSFOMYCIN TROMETHAMINE - BP [Suspect]
     Active Substance: FOSFOMYCIN TROMETHAMINE
     Indication: URINARY TRACT INFECTION
     Dosage: UNK
     Route: 065
     Dates: start: 201707
  2. ASS RATIOPHARM [Concomitant]
     Active Substance: ASPIRIN
     Dosage: 100 MG, UNK
  3. CANDESARTAN HEUMANN [Concomitant]
     Dosage: UNK
  4. AMLODIPIN DEXCEL [Concomitant]
     Dosage: UNK

REACTIONS (6)
  - Pemphigoid [Not Recovered/Not Resolved]
  - Dizziness [Recovered/Resolved]
  - Nausea [Recovered/Resolved]
  - Drug ineffective [Unknown]
  - Off label use [Unknown]
  - Diarrhoea [Recovered/Resolved]

NARRATIVE: CASE EVENT DATE: 201707
